FAERS Safety Report 7383452-7 (Version None)
Quarter: 2011Q1

REPORT INFORMATION
  Report Type: 
  Country: None (occurrence: None)
  Receive Date: 20110328
  Receipt Date: 20110328
  Transmission Date: 20110831
  Serious: Yes (Life-Threatening, Hospitalization)
  Sender: FDA-Public Use
  Company Number: None

PATIENT
  Sex: Female
  Weight: 70.7611 kg

DRUGS (2)
  1. MOXIFLOXACIN [Suspect]
     Indication: SEPSIS
     Dosage: 400MG Q24H IV DRIP
     Route: 041
     Dates: start: 20110320, end: 20110321
  2. MOXIFLOXACIN [Suspect]
     Indication: PNEUMONIA
     Dosage: 400MG Q24H IV DRIP
     Route: 041
     Dates: start: 20110320, end: 20110321

REACTIONS (3)
  - TORSADE DE POINTES [None]
  - VENTRICULAR TACHYCARDIA [None]
  - VENTRICULAR FIBRILLATION [None]
